FAERS Safety Report 9307061 (Version 2)
Quarter: 2013Q3

REPORT INFORMATION
  Report Type: Report from Study
  Country: DE (occurrence: DE)
  Receive Date: 20130523
  Receipt Date: 20130712
  Transmission Date: 20140515
  Serious: Yes (Hospitalization, Other)
  Sender: FDA-Public Use
  Company Number: DE-ELI_LILLY_AND_COMPANY-DE201304004533

PATIENT
  Sex: Male

DRUGS (8)
  1. TERIPARATIDE [Suspect]
     Indication: OSTEOPOROSIS
     Dosage: UNK
     Route: 058
     Dates: start: 20120804
  2. MARCUMAR [Concomitant]
  3. DEKRISTOL [Concomitant]
     Dosage: 2000 IU, OTHER
  4. CALCIUM [Concomitant]
     Dosage: 1000 MG, 3 TIMES DAILY
  5. LEVODOPA [Concomitant]
     Indication: PARKINSON^S DISEASE
     Dosage: 0.5 DF, UNKNOWN
  6. DILTIAZEM [Concomitant]
     Indication: CARDIOVASCULAR DISORDER
     Dosage: 90 MG, UNK
  7. MOLSIDOMIN [Concomitant]
     Indication: DEHYDRATION
  8. RAMIPRIL [Concomitant]

REACTIONS (4)
  - Angiopathy [Unknown]
  - Skin erosion [Recovered/Resolved]
  - Small intestinal haemorrhage [Unknown]
  - Pain in extremity [Unknown]
